FAERS Safety Report 16340650 (Version 1)
Quarter: 2019Q2

REPORT INFORMATION
  Report Type: Spontaneous
  Country: CA (occurrence: CA)
  Receive Date: 20190522
  Receipt Date: 20190522
  Transmission Date: 20190711
  Serious: Yes (Disabling)
  Sender: FDA-Public Use
  Company Number: CA-TEVA-2019-CA-1050600

PATIENT
  Age: 41 Year
  Sex: Female
  Weight: 62 kg

DRUGS (7)
  1. CRESTOR [Concomitant]
     Active Substance: ROSUVASTATIN CALCIUM
  2. DEXILANT [Concomitant]
     Active Substance: DEXLANSOPRAZOLE
  3. TEVA-TADALAFIL FOR ONCE-A-DAY USE [Suspect]
     Active Substance: TADALAFIL
     Indication: RAYNAUD^S PHENOMENON
     Dosage: 5 MILLIGRAM DAILY;
     Route: 048
  4. BISOPROLOL [Concomitant]
     Active Substance: BISOPROLOL
  5. PREDNISONE. [Concomitant]
     Active Substance: PREDNISONE
  6. ASA [Concomitant]
     Active Substance: ASPIRIN
  7. ANAPROX [Concomitant]
     Active Substance: NAPROXEN SODIUM

REACTIONS (1)
  - Gangrene [Not Recovered/Not Resolved]
